FAERS Safety Report 7891126 (Version 2)
Quarter: 2012Q4

REPORT INFORMATION
  Report Type: Spontaneous
  Country: US (occurrence: None)
  Receive Date: 20110315
  Receipt Date: 20120821
  Transmission Date: 20130627
  Serious: Yes (Other)
  Sender: FDA-Public Use
  Company Number: 2011MA001986

PATIENT
  Sex: Female
  Weight: 115.67 kg

DRUGS (64)
  1. METOCLOPRAMIDE HYDROCHLORIDE [Suspect]
     Indication: ACID REFLUX
     Route: 048
     Dates: start: 20050915, end: 20100203
  2. ACETYLCYSTEINE [Concomitant]
  3. ACYCLOVIR [Concomitant]
  4. ALTACE [Concomitant]
  5. AMITRIPTYLINE [Concomitant]
  6. AMOXICILLIN [Concomitant]
  7. ASPIRINE [Concomitant]
  8. ATACAND [Concomitant]
  9. AZITHROMYCIN [Concomitant]
  10. BETAMETHASONE [Concomitant]
  11. BENADRYL [Concomitant]
  12. BEXTRA [Concomitant]
  13. BUPROPION [Concomitant]
  14. CALCITRIOL [Concomitant]
  15. CEPHALEXIN [Concomitant]
  16. CEPHALEXIN [Concomitant]
  17. CHLORHEXIDINE [Concomitant]
  18. CILOSTAZOL [Concomitant]
  19. CRESTOR [Concomitant]
  20. CYMBALTA [Concomitant]
  21. DIOVAN [Concomitant]
  22. EPOGEN [Concomitant]
  23. FLUOXETINE [Concomitant]
  24. FUROSEMIDE [Concomitant]
  25. GLUCOPHAGE [Concomitant]
  26. GLYBURIDE [Concomitant]
  27. HEPARIN [Concomitant]
  28. HUMULIN R [Concomitant]
  29. LANTUS [Concomitant]
  30. NOVOLOG [Concomitant]
  31. ISOSORBIDE [Concomitant]
  32. KEFLEX [Concomitant]
  33. LEVAQUIN [Concomitant]
  34. LISINOPRIL [Concomitant]
  35. LOTEMAX [Concomitant]
  36. LEXAPRO [Concomitant]
  37. MACTODANTIN [Concomitant]
  38. METHYLPREDNISOLONE [Concomitant]
  39. METOPROLOL [Concomitant]
  40. MOTRIN [Concomitant]
  41. NEOMYCIN-FOLYMYXIN-DEXAMETHASONE [Concomitant]
  42. NEXIUM [Concomitant]
  43. NIASPAN [Concomitant]
  44. NITROFURANTOIN MONO-MICRO [Concomitant]
  45. NITROGLYCERIN [Concomitant]
  46. OMACOR [Concomitant]
  47. OMEPRAZOLE [Concomitant]
  48. OMNICEF [Concomitant]
  49. PLAVIX [Concomitant]
  50. PREVACID [Concomitant]
  51. PROCRIT [Concomitant]
  52. PROMETHAZINE-CODEINE [Concomitant]
  53. RANEXA [Concomitant]
  54. ROCEPHIN [Concomitant]
  55. STOOL SOFTNER [Concomitant]
  56. SULFAMETHOXAZOLE-TRIMETHOPRIM [Concomitant]
  57. TRAMADOL [Concomitant]
  58. TYLENOL ARTHRITIS STRENGTH [Concomitant]
  59. VIOXX [Concomitant]
  60. VITAMIN D2 [Concomitant]
  61. VYTORIN [Concomitant]
  62. ZANTAC [Concomitant]
  63. ZETIA [Concomitant]
  64. ZOLOFT [Concomitant]

REACTIONS (38)
  - Tardive dyskinesia [None]
  - Extrapyramidal disorder [None]
  - Injury [None]
  - Emotional disorder [None]
  - Economic problem [None]
  - Acute coronary syndrome [None]
  - Anaemia [None]
  - Depression [None]
  - Anxiety [None]
  - Coronary artery disease [None]
  - Fluid overload [None]
  - Renal failure acute [None]
  - Hypotension [None]
  - Rash papular [None]
  - Diabetes mellitus [None]
  - Presyncope [None]
  - Obesity [None]
  - Spinal column stenosis [None]
  - Dyspepsia [None]
  - Hyperkalaemia [None]
  - Renal tubular acidosis [None]
  - Cholelithiasis [None]
  - Head injury [None]
  - Neck injury [None]
  - Road traffic accident [None]
  - Arthralgia [None]
  - Dizziness [None]
  - Loss of consciousness [None]
  - Arthralgia [None]
  - Asthenia [None]
  - Balance disorder [None]
  - Vertigo [None]
  - Acute myocardial infarction [None]
  - Angina unstable [None]
  - Abdominal distension [None]
  - Coronary artery stenosis [None]
  - Urinary tract infection [None]
  - Vitamin D decreased [None]
